FAERS Safety Report 7543496-9 (Version None)
Quarter: 2011Q2

REPORT INFORMATION
  Report Type: 
  Country: None (occurrence: None)
  Receive Date: 20110613
  Receipt Date: 20110602
  Transmission Date: 20111010
  Serious: Yes (Other)
  Sender: FDA-Public Use
  Company Number: GB-NOVOPROD-329309

PATIENT
  Age: 57 Year
  Sex: Female
  Weight: 94.15 kg

DRUGS (6)
  1. ATORVASTATIN [Concomitant]
     Dosage: 20 MG, QD
  2. METRONIDAZOLE [Concomitant]
     Dosage: UNK
     Dates: start: 20110330
  3. GYNO DAKTARIN [Concomitant]
  4. METFORMIN HCL [Concomitant]
     Dosage: 1 G, TID
  5. VICTOZA [Suspect]
     Indication: PRODUCT USED FOR UNKNOWN INDICATION
     Dosage: 1.2 MG, QD
     Route: 058
     Dates: start: 20110330
  6. LEVOTHYROXINE SODIUM [Concomitant]
     Dosage: 50 UG, QD

REACTIONS (1)
  - ALANINE AMINOTRANSFERASE INCREASED [None]
